FAERS Safety Report 14365927 (Version 2)
Quarter: 2018Q1

REPORT INFORMATION
  Report Type: Spontaneous
  Country: US (occurrence: US)
  Receive Date: 20180109
  Receipt Date: 20180129
  Transmission Date: 20180509
  Serious: Yes (Other)
  Sender: FDA-Public Use
  Company Number: US-HORIZON-VIM-0001-2018

PATIENT
  Sex: Male

DRUGS (5)
  1. VIMOVO [Suspect]
     Active Substance: ESOMEPRAZOLE MAGNESIUM\NAPROXEN
     Indication: PRODUCT USED FOR UNKNOWN INDICATION
     Dosage: PATIENT TOOK 1 PILL
  2. VERAPAMIL [Interacting]
     Active Substance: VERAPAMIL HYDROCHLORIDE
     Dosage: 40 MG
  3. LOSARTAN. [Interacting]
     Active Substance: LOSARTAN
     Dosage: 40 MG
  4. BABY ASPIRIN [Interacting]
     Active Substance: ASPIRIN
     Dosage: 80 MG
  5. TRAMADOL. [Interacting]
     Active Substance: TRAMADOL
     Dosage: AS NEEDED

REACTIONS (4)
  - Swollen tongue [Recovered/Resolved]
  - Drug interaction [Recovered/Resolved]
  - Urticaria [Recovered/Resolved]
  - Vomiting [Recovered/Resolved]
